FAERS Safety Report 13123213 (Version 1)
Quarter: 2017Q1

REPORT INFORMATION
  Report Type: Report from Study
  Country: US (occurrence: US)
  Receive Date: 20170117
  Receipt Date: 20170117
  Transmission Date: 20170428
  Serious: No
  Sender: FDA-Public Use
  Company Number: US-AMGEN-USASL2016152644

PATIENT
  Age: 31 Year

DRUGS (18)
  1. COZAAR [Concomitant]
     Active Substance: LOSARTAN POTASSIUM
     Dosage: 1 DF, QD FOR 360 DAYS
     Route: 048
  2. CORLANOR [Suspect]
     Active Substance: IVABRADINE HYDROCHLORIDE
     Indication: PRODUCT USED FOR UNKNOWN INDICATION
     Dosage: 5 MG, BID
     Route: 048
  3. TRILEPTAL [Concomitant]
     Active Substance: OXCARBAZEPINE
     Dosage: 300 MG, BID
     Route: 048
  4. LAMICTAL [Concomitant]
     Active Substance: LAMOTRIGINE
     Dosage: 200 MG, QD
     Route: 048
  5. VICTOZA [Concomitant]
     Active Substance: LIRAGLUTIDE
     Dosage: 3 MG, QD
  6. BEYAZ [Concomitant]
     Active Substance: DROSPIRENONE\ETHINYL ESTRADIOL\LEVOMEFOLATE CALCIUM
     Dosage: UNK UNK, QD
     Route: 048
  7. LASIX [Concomitant]
     Active Substance: FUROSEMIDE
     Dosage: 1 DF, QD
     Route: 048
  8. TOPROL XL [Concomitant]
     Active Substance: METOPROLOL SUCCINATE
     Dosage: 1 DF, BID FRO 360 DAYS
     Route: 048
  9. ALBUTEROL. [Concomitant]
     Active Substance: ALBUTEROL
     Dosage: UNK, INHALE INTO THE LUNGS AS NEEDED
  10. ABILIFY [Concomitant]
     Active Substance: ARIPIPRAZOLE
     Dosage: 5 MG, UNK
     Route: 048
  11. INSULIN [Concomitant]
     Active Substance: INSULIN NOS
     Dosage: UNK
  12. GLUCOPHAGE [Concomitant]
     Active Substance: METFORMIN HYDROCHLORIDE
     Dosage: 1 DF, BID WITH MEAF FOR 360 DAYS
     Route: 048
  13. ASPIRIN. [Concomitant]
     Active Substance: ASPIRIN
     Dosage: 81 MG, QD
     Route: 048
  14. TOPAMAX [Concomitant]
     Active Substance: TOPIRAMATE
     Dosage: 50 MG, BID
  15. VIVACTIL [Concomitant]
     Active Substance: PROTRIPTYLINE HYDROCHLORIDE
     Dosage: 10 MG, BID
  16. OMEGA-3 FATTY ACIDS W/VITAMIN E NOS [Concomitant]
     Dosage: 1 DF, QD
     Route: 048
  17. ALLEGRA [Concomitant]
     Active Substance: FEXOFENADINE HYDROCHLORIDE
     Dosage: UNK AS NEEDED
     Route: 048
  18. MARPLAN [Concomitant]
     Active Substance: ISOCARBOXAZID
     Dosage: 20 MG, QID
     Route: 048

REACTIONS (1)
  - Off label use [Unknown]
